FAERS Safety Report 21781647 (Version 1)
Quarter: 2022Q4

REPORT INFORMATION
  Report Type: Spontaneous
  Country: US (occurrence: None)
  Receive Date: 20221223
  Receipt Date: 20221223
  Transmission Date: 20230113
  Serious: No
  Sender: FDA-Public Use
  Company Number: None

PATIENT
  Age: 73 Year
  Sex: Female
  Weight: 62.2 kg

DRUGS (2)
  1. CARBOPLATIN [Suspect]
     Active Substance: CARBOPLATIN
     Dates: end: 20221122
  2. TAXOL [Suspect]
     Active Substance: PACLITAXEL
     Dates: end: 20221122

REACTIONS (5)
  - Proctalgia [None]
  - Haemorrhoids [None]
  - Tachycardia [None]
  - Fibrin D dimer increased [None]
  - Pulmonary embolism [None]

NARRATIVE: CASE EVENT DATE: 20221221
